FAERS Safety Report 25622518 (Version 1)
Quarter: 2025Q3

REPORT INFORMATION
  Report Type: Spontaneous
  Country: JP (occurrence: JP)
  Receive Date: 20250730
  Receipt Date: 20250730
  Transmission Date: 20251021
  Serious: Yes (Death, Other)
  Sender: LEADING PHARMA
  Company Number: JP-LEADINGPHARMA-JP-2025LEALIT00127

PATIENT
  Age: 71 Year
  Sex: Female

DRUGS (2)
  1. HYDROXYUREA [Suspect]
     Active Substance: HYDROXYUREA
     Indication: Essential thrombocythaemia
     Route: 065
  2. HYDROXYUREA [Suspect]
     Active Substance: HYDROXYUREA
     Indication: CALR gene mutation

REACTIONS (5)
  - Laryngeal necrosis [Fatal]
  - Laryngitis [Fatal]
  - Lower respiratory tract infection bacterial [Fatal]
  - Lower respiratory tract infection fungal [Fatal]
  - Product use in unapproved indication [Unknown]
